FAERS Safety Report 5955410-8 (Version None)
Quarter: 2008Q4

REPORT INFORMATION
  Report Type: 
  Country: None (occurrence: None)
  Receive Date: 20081113
  Receipt Date: 20081113
  Transmission Date: 20090506
  Serious: No
  Sender: FDA-Public Use
  Company Number: None

PATIENT
  Age: 62 Year
  Sex: Male

DRUGS (1)
  1. VARENICLINE [Suspect]
     Dosage: 2 MG EVERY DAY PO
     Route: 048
     Dates: start: 20080611, end: 20080618

REACTIONS (1)
  - UNEVALUABLE EVENT [None]
